FAERS Safety Report 10952075 (Version 1)
Quarter: 2015Q1

REPORT INFORMATION
  Report Type: Spontaneous
  Country: US (occurrence: None)
  Receive Date: 20150324
  Receipt Date: 20150324
  Transmission Date: 20150721
  Serious: Yes (Hospitalization)
  Sender: FDA-Public Use
  Company Number: None

PATIENT
  Age: 77 Year
  Sex: Female
  Weight: 73.1 kg

DRUGS (2)
  1. MS CONTIN [Suspect]
     Active Substance: MORPHINE SULFATE
     Indication: PAIN
     Dosage: 2 DOSES
     Route: 048
  2. HEPARIN (PORCINE) [Concomitant]

REACTIONS (5)
  - Renal failure [None]
  - Confusional state [None]
  - Lethargy [None]
  - Toxic encephalopathy [None]
  - Azotaemia [None]

NARRATIVE: CASE EVENT DATE: 20150320
